FAERS Safety Report 13002971 (Version 1)
Quarter: 2016Q4

REPORT INFORMATION
  Report Type: Spontaneous
  Country: US (occurrence: US)
  Receive Date: 20161205
  Receipt Date: 20161205
  Transmission Date: 20170207
  Serious: No
  Sender: FDA-Public Use
  Company Number: None

PATIENT
  Age: 70 Year
  Sex: Male

DRUGS (1)
  1. PRALUENT [Suspect]
     Active Substance: ALIROCUMAB
     Dosage: ?          OTHER FREQUENCY:Q 2 WEEJS;?
     Route: 058
     Dates: start: 20160920, end: 20161205

REACTIONS (3)
  - Pain in extremity [None]
  - Mobility decreased [None]
  - Post procedural complication [None]

NARRATIVE: CASE EVENT DATE: 20161205
